FAERS Safety Report 8928892 (Version 4)
Quarter: 2014Q1

REPORT INFORMATION
  Report Type: Spontaneous
  Country: JP (occurrence: JP)
  Receive Date: 20121128
  Receipt Date: 20140128
  Transmission Date: 20141002
  Serious: Yes (Hospitalization, Other)
  Sender: FDA-Public Use
  Company Number: JP-AMGEN-JPNSP2012075966

PATIENT
  Age: 33 Year
  Sex: Female
  Weight: 46.3 kg

DRUGS (3)
  1. ENBREL [Suspect]
     Indication: RHEUMATOID ARTHRITIS
     Dosage: 50 MG, WEEKLY
     Route: 065
  2. PREDNISOLONE [Concomitant]
     Dosage: 7 MG, 1X/DAY
  3. FOLIC ACID [Concomitant]
     Indication: SIDEROBLASTIC ANAEMIA
     Dosage: UNK

REACTIONS (3)
  - Disseminated intravascular coagulation [Recovered/Resolved]
  - Renal abscess [Recovered/Resolved]
  - Splenic abscess [Recovered/Resolved]
